FAERS Safety Report 21956303 (Version 2)
Quarter: 2023Q2

REPORT INFORMATION
  Report Type: Spontaneous
  Country: US (occurrence: US)
  Receive Date: 20230206
  Receipt Date: 20230410
  Transmission Date: 20230722
  Serious: No
  Sender: FDA-Public Use
  Company Number: US-SANOFI-01473242

PATIENT
  Age: 77 Year
  Sex: Female

DRUGS (4)
  1. LANTUS SOLOSTAR [Suspect]
     Active Substance: INSULIN GLARGINE
     Indication: Type 2 diabetes mellitus
     Dosage: 55 IU, QD
  2. LANTUS SOLOSTAR [Suspect]
     Active Substance: INSULIN GLARGINE
     Dosage: 60 IU, QD
  3. CORTISONE [Suspect]
     Active Substance: CORTISONE
     Dosage: UNK
  4. METFORMIN [Suspect]
     Active Substance: METFORMIN HYDROCHLORIDE
     Dosage: UNK

REACTIONS (7)
  - Dizziness [Recovering/Resolving]
  - Fall [Recovering/Resolving]
  - Joint injury [Recovering/Resolving]
  - Dysphagia [Recovering/Resolving]
  - Gastrointestinal disorder [Recovering/Resolving]
  - Oesophageal disorder [Recovering/Resolving]
  - Blood glucose abnormal [Recovering/Resolving]
